FAERS Safety Report 4890865-1 (Version None)
Quarter: 2006Q1

REPORT INFORMATION
  Report Type: 
  Country: None (occurrence: None)
  Receive Date: 20060123
  Receipt Date: 20060109
  Transmission Date: 20060701
  Serious: Yes (Hospitalization)
  Sender: FDA-Public Use
  Company Number: 2005BI016263

PATIENT
  Age: 33 Year
  Sex: Male
  Weight: 108.8633 kg

DRUGS (3)
  1. AVONEX [Suspect]
     Indication: MULTIPLE SCLEROSIS
     Dosage: 30 UG QW IM
     Route: 030
     Dates: start: 20010601
  2. IMITREX [Concomitant]
  3. VICODIN [Concomitant]

REACTIONS (11)
  - ANKLE FRACTURE [None]
  - CONCUSSION [None]
  - EXCORIATION [None]
  - FOOT FRACTURE [None]
  - JOINT RANGE OF MOTION DECREASED [None]
  - LOWER LIMB FRACTURE [None]
  - MULTIPLE SCLEROSIS RELAPSE [None]
  - POLYTRAUMATISM [None]
  - RIB FRACTURE [None]
  - ROAD TRAFFIC ACCIDENT [None]
  - UPPER LIMB FRACTURE [None]
